FAERS Safety Report 12956355 (Version 2)
Quarter: 2016Q4

REPORT INFORMATION
  Report Type: Spontaneous
  Country: US (occurrence: US)
  Receive Date: 20161118
  Receipt Date: 20161123
  Transmission Date: 20170207
  Serious: Yes (Other)
  Sender: FDA-Public Use
  Company Number: US-LUNDBECK-DKLU2021243

PATIENT
  Age: 41 Year
  Sex: Female

DRUGS (2)
  1. NORTHERA [Suspect]
     Active Substance: DROXIDOPA
     Indication: ORTHOSTATIC HYPOTENSION
     Route: 048
  2. NORTHERA [Suspect]
     Active Substance: DROXIDOPA
     Indication: AUTONOMIC NEUROPATHY
     Dosage: TITRATION SCHEDULE B (COMPLETE)
     Route: 048
     Dates: start: 20161005

REACTIONS (8)
  - Heart rate irregular [Recovered/Resolved]
  - Drug dose omission [Recovered/Resolved]
  - Blood pressure increased [Recovered/Resolved]
  - Dizziness [Not Recovered/Not Resolved]
  - Seizure [Not Recovered/Not Resolved]
  - Chest pain [Recovered/Resolved]
  - Heart rate decreased [Recovered/Resolved]
  - Headache [Recovered/Resolved]

NARRATIVE: CASE EVENT DATE: 20161012
